FAERS Safety Report 13815456 (Version 1)
Quarter: 2017Q3

REPORT INFORMATION
  Report Type: Spontaneous
  Country: US (occurrence: US)
  Receive Date: 20170731
  Receipt Date: 20170731
  Transmission Date: 20171127
  Serious: Yes (Other)
  Sender: FDA-Public Use
  Company Number: None

PATIENT
  Age: 30 Year
  Sex: Female
  Weight: 50 kg

DRUGS (11)
  1. CIZAX [Concomitant]
  2. ALGINAC RETARD [Concomitant]
  3. NUVARING [Suspect]
     Active Substance: ETHINYL ESTRADIOL\ETONOGESTREL
     Indication: CONTRACEPTION
     Dosage: ?          OTHER FREQUENCY:3 WEEKS;?
     Route: 067
     Dates: start: 20161126, end: 20170721
  4. COQ10 [Concomitant]
     Active Substance: UBIDECARENONE
  5. DHEA [Concomitant]
     Active Substance: PRASTERONE
  6. LEVOTIROXIN [Concomitant]
     Active Substance: LEVOTHYROXINE SODIUM
  7. PAROXETIN [Concomitant]
     Active Substance: PAROXETINE HYDROCHLORIDE
  8. BIOTIN [Concomitant]
     Active Substance: BIOTIN
  9. COLLAGEN [Concomitant]
     Active Substance: COLLAGEN
  10. PROBIOTIC [Concomitant]
     Active Substance: PROBIOTICS NOS
  11. ALPHA LIPOLIC ACID [Concomitant]

REACTIONS (3)
  - Abdominal pain [None]
  - Pregnancy with contraceptive device [None]
  - Exposure during pregnancy [None]

NARRATIVE: CASE EVENT DATE: 20170721
